FAERS Safety Report 11088912 (Version 3)
Quarter: 2015Q2

REPORT INFORMATION
  Report Type: Report from Study
  Country: CA (occurrence: CA)
  Receive Date: 20150504
  Receipt Date: 20150602
  Transmission Date: 20150821
  Serious: Yes (Hospitalization, Other)
  Sender: FDA-Public Use
  Company Number: CA-ABBVIE-15P-028-1384805-00

PATIENT
  Age: 70 Year
  Sex: Male
  Weight: 77.5 kg

DRUGS (15)
  1. FLOMAX [Concomitant]
     Active Substance: TAMSULOSIN HYDROCHLORIDE
     Indication: PRODUCT USED FOR UNKNOWN INDICATION
  2. VITAMIN B12 [Concomitant]
     Active Substance: CYANOCOBALAMIN
     Indication: PRODUCT USED FOR UNKNOWN INDICATION
  3. TECTA [Concomitant]
     Active Substance: PANTOPRAZOLE MAGNESIUM
     Indication: PRODUCT USED FOR UNKNOWN INDICATION
  4. LIPITOR [Concomitant]
     Active Substance: ATORVASTATIN CALCIUM
     Indication: PRODUCT USED FOR UNKNOWN INDICATION
  5. LIPITOR [Concomitant]
     Active Substance: ATORVASTATIN CALCIUM
  6. ROPINIROLE. [Concomitant]
     Active Substance: ROPINIROLE
     Indication: PRODUCT USED FOR UNKNOWN INDICATION
  7. VITAMIN D [Concomitant]
     Active Substance: CHOLECALCIFEROL
     Indication: PRODUCT USED FOR UNKNOWN INDICATION
  8. DUODOPA [Suspect]
     Active Substance: CARBIDOPA\LEVODOPA
     Indication: PRODUCT USED FOR UNKNOWN INDICATION
     Dosage: 1 CASSETTE PER DAY
     Route: 050
     Dates: start: 20150121, end: 20150417
  9. ASA [Concomitant]
     Active Substance: ASPIRIN
     Indication: PRODUCT USED FOR UNKNOWN INDICATION
  10. BACLOFEN. [Concomitant]
     Active Substance: BACLOFEN
     Indication: PRODUCT USED FOR UNKNOWN INDICATION
  11. COMTAN [Concomitant]
     Active Substance: ENTACAPONE
     Indication: PRODUCT USED FOR UNKNOWN INDICATION
  12. MIDODRINE [Concomitant]
     Active Substance: MIDODRINE
     Indication: PRODUCT USED FOR UNKNOWN INDICATION
  13. SINEMET [Concomitant]
     Active Substance: CARBIDOPA\LEVODOPA
     Indication: PRODUCT USED FOR UNKNOWN INDICATION
  14. DUODOPA [Suspect]
     Active Substance: CARBIDOPA\LEVODOPA
     Dosage: 1 CASSETTE PER DAY
     Route: 050
     Dates: start: 20150423
  15. ZOPICLONE [Concomitant]
     Active Substance: ZOPICLONE
     Indication: PRODUCT USED FOR UNKNOWN INDICATION

REACTIONS (31)
  - Gastrointestinal disorder [Unknown]
  - Volvulus [Unknown]
  - Pneumonia [Unknown]
  - Postoperative ileus [Unknown]
  - Cholelithiasis [Unknown]
  - Intestinal dilatation [Recovering/Resolving]
  - Hiatus hernia [Unknown]
  - Abdominal pain lower [Recovering/Resolving]
  - Nausea [Unknown]
  - Back pain [Recovering/Resolving]
  - Pancreatic atrophy [Unknown]
  - Inguinal hernia [Unknown]
  - Gastric dilatation [Recovering/Resolving]
  - Infection [Unknown]
  - Abdominal distension [Unknown]
  - Pulmonary mass [Unknown]
  - Intestinal obstruction [Recovered/Resolved]
  - Constipation [Unknown]
  - Ascites [Unknown]
  - Nephrolithiasis [Unknown]
  - Vascular calcification [Unknown]
  - Prostatic calcification [Unknown]
  - Spinal osteoarthritis [Unknown]
  - Decreased appetite [Unknown]
  - Atelectasis [Recovering/Resolving]
  - Intestinal dilatation [Unknown]
  - Pleural effusion [Unknown]
  - Gastrointestinal necrosis [Unknown]
  - Pleural effusion [Recovering/Resolving]
  - Aortic calcification [Unknown]
  - Aspiration [Unknown]

NARRATIVE: CASE EVENT DATE: 20150416
